FAERS Safety Report 8829946 (Version 2)
Quarter: 2012Q4

REPORT INFORMATION
  Report Type: 
  Country: US (occurrence: US)
  Receive Date: 20121008
  Receipt Date: 20121023
  Transmission Date: 20130627
  Serious: Yes (Other)
  Sender: FDA-Public Use
  Company Number: US-PFIZER INC-2012244852

PATIENT
  Age: 23 Year
  Sex: Male
  Weight: 66.67 kg

DRUGS (1)
  1. EPIPEN [Suspect]
     Indication: ANAPHYLACTIC REACTION
     Dosage: UNK

REACTIONS (3)
  - Drug administration error [Unknown]
  - Bone pain [Unknown]
  - Myalgia [Unknown]
